FAERS Safety Report 23015384 (Version 2)
Quarter: 2023Q4

REPORT INFORMATION
  Report Type: Spontaneous
  Country: MX (occurrence: None)
  Receive Date: 20231002
  Receipt Date: 20231024
  Transmission Date: 20240110
  Serious: No
  Sender: FDA-Public Use
  Company Number: MX-ROCHE-3431637

PATIENT
  Sex: Male
  Weight: 110 kg

DRUGS (2)
  1. RITUXIMAB [Suspect]
     Active Substance: RITUXIMAB
     Indication: Multiple sclerosis
     Dosage: 2 FLASKS OF 500 MG, EVERY 6 MONTHS
     Route: 042
     Dates: start: 2022, end: 202303
  2. RITUXIMAB [Suspect]
     Active Substance: RITUXIMAB
     Dosage: FIRST DOSE, ONCE EVERY MONTH
     Route: 042
     Dates: start: 2022, end: 202303

REACTIONS (2)
  - Blood glucose increased [Recovered/Resolved]
  - Off label use [Unknown]

NARRATIVE: CASE EVENT DATE: 20220101
